FAERS Safety Report 6191228-1 (Version None)
Quarter: 2009Q2

REPORT INFORMATION
  Report Type: 
  Country: None (occurrence: None)
  Receive Date: 20090513
  Receipt Date: 20090513
  Transmission Date: 20091009
  Serious: Yes (Death)
  Sender: FDA-Public Use
  Company Number: None

PATIENT
  Age: 60 Year
  Sex: Male

DRUGS (1)
  1. DIGOXIN [Suspect]
     Indication: HEART RATE
     Dosage: .25 MG DAILY ORAL
     Route: 048
     Dates: start: 20081218, end: 20090111

REACTIONS (5)
  - CEREBROVASCULAR ACCIDENT [None]
  - HEART RATE IRREGULAR [None]
  - HEPATIC FAILURE [None]
  - NEOPLASM MALIGNANT [None]
  - RENAL FAILURE [None]
